FAERS Safety Report 5403728-X (Version None)
Quarter: 2007Q3

REPORT INFORMATION
  Report Type: 
  Country: None (occurrence: None)
  Receive Date: 20070802
  Receipt Date: 20070723
  Transmission Date: 20080115
  Serious: Yes (Other)
  Sender: FDA-Public Use
  Company Number: ZA-JNJFOC-20070704905

PATIENT
  Sex: Female

DRUGS (5)
  1. SPORANOX [Suspect]
  2. SPORANOX [Suspect]
  3. SPORANOX [Suspect]
  4. SPORANOX [Suspect]
     Indication: ONYCHOMYCOSIS
  5. ANTIBIOTICS [Concomitant]
     Indication: KIDNEY INFECTION
     Route: 065

REACTIONS (4)
  - KIDNEY INFECTION [None]
  - ONYCHOMYCOSIS [None]
  - PHARYNGEAL CANDIDIASIS [None]
  - VAGINAL CANDIDIASIS [None]
